FAERS Safety Report 5005906-0 (Version None)
Quarter: 2006Q2

REPORT INFORMATION
  Report Type: 
  Country: None (occurrence: None)
  Receive Date: 20060518
  Receipt Date: 20060419
  Transmission Date: 20061013
  Serious: Yes (Hospitalization, Other)
  Sender: FDA-Public Use
  Company Number: PHBS2006JP05840

PATIENT
  Age: 54 Year
  Sex: Female
  Weight: 49 kg

DRUGS (8)
  1. DIOVAN [Suspect]
     Dosage: 80 MG/DAY
     Route: 048
     Dates: start: 20060414, end: 20060417
  2. ALFAROL [Concomitant]
     Dosage: 0.25 UG, UNK
  3. THYRADIN [Concomitant]
     Dosage: 100 MG, UNK
     Route: 048
  4. KAKKON-TO [Concomitant]
     Dosage: UNK, UNK
     Route: 048
     Dates: start: 20060407, end: 20060416
  5. MEDICON [Concomitant]
     Route: 048
  6. BROCIN [Concomitant]
     Route: 048
  7. APRICOT KERNEL WATER [Concomitant]
     Route: 048
  8. ASPARA-CA [Concomitant]
     Route: 042

REACTIONS (1)
  - HAEMOLYSIS [None]
